FAERS Safety Report 9957169 (Version 1)
Quarter: 2014Q1

REPORT INFORMATION
  Report Type: Report from Study
  Country: US (occurrence: US)
  Receive Date: 20140304
  Receipt Date: 20140304
  Transmission Date: 20141002
  Serious: No
  Sender: FDA-Public Use
  Company Number: US-ABBVIE-13P-163-1100076-00

PATIENT
  Age: 55 Year
  Sex: Female

DRUGS (6)
  1. HUMIRA [Suspect]
     Indication: PSORIASIS
     Dates: start: 201210, end: 20130505
  2. HUMIRA [Suspect]
     Indication: PSORIATIC ARTHROPATHY
  3. PAXIL [Concomitant]
     Indication: MENOPAUSE
     Dosage: 25MG DAILY, TIME RELEASED
     Route: 048
  4. NORCO [Concomitant]
     Indication: ARTHRALGIA
     Dosage: 10/325MG, 1-2 TABLETS EVERY 6 HOURS
     Route: 048
  5. PREMPRO [Concomitant]
     Indication: HORMONE REPLACEMENT THERAPY
     Dosage: 0.45/0.15MG DAILY
     Route: 048
  6. TACLONEX [Concomitant]
     Indication: PSORIASIS
     Dosage: 0.005%/0.064%/APPLIED TOHAND
     Route: 061

REACTIONS (11)
  - Pruritus [Unknown]
  - Chills [Unknown]
  - Feeling abnormal [Unknown]
  - Candida infection [Unknown]
  - Impetigo [Unknown]
  - Injection site swelling [Recovered/Resolved]
  - Laceration [Unknown]
  - Infection [Unknown]
  - Psoriasis [Unknown]
  - Oropharyngeal pain [Unknown]
  - Injection site swelling [Recovering/Resolving]
